FAERS Safety Report 22171004 (Version 1)
Quarter: 2023Q2

REPORT INFORMATION
  Report Type: Spontaneous
  Country: None (occurrence: US)
  Receive Date: 20230404
  Receipt Date: 20230404
  Transmission Date: 20230722
  Serious: No
  Sender: FDA-Public Use
  Company Number: US-Ajanta Pharma USA Inc.-2139862

PATIENT
  Age: 68 Year
  Sex: Female
  Weight: 54.545 kg

DRUGS (1)
  1. CHOLESTYRAMINE [Suspect]
     Active Substance: CHOLESTYRAMINE
     Indication: Crohn^s disease
     Route: 048
     Dates: start: 20220817, end: 20220917

REACTIONS (7)
  - Foreign body in throat [Recovered/Resolved]
  - Product taste abnormal [Recovered/Resolved]
  - Off label use [Recovered/Resolved]
  - Product use complaint [Recovered/Resolved]
  - Product physical consistency issue [Recovered/Resolved]
  - Product solubility abnormal [Recovered/Resolved]
  - Product substitution issue [Recovered/Resolved]

NARRATIVE: CASE EVENT DATE: 20220817
